FAERS Safety Report 10642697 (Version 1)
Quarter: 2014Q4

REPORT INFORMATION
  Report Type: Spontaneous
  Country: US (occurrence: None)
  Receive Date: 20141121
  Receipt Date: 20141121
  Transmission Date: 20150529
  Serious: No
  Sender: FDA-Public Use
  Company Number: 163-10004-14091640

PATIENT
  Age: 49 Year
  Sex: Female

DRUGS (5)
  1. OTEZLA [Suspect]
     Active Substance: APREMILAST
     Indication: RHEUMATOID ARTHRITIS
     Route: 048
     Dates: start: 20140822
  2. KLOR-CON (POTASSIUM CHLORIDE) [Concomitant]
  3. BUMEX (BUMETANIDE) [Concomitant]
  4. XANAX [Concomitant]
     Active Substance: ALPRAZOLAM
  5. LISINOPRIL. [Concomitant]
     Active Substance: LISINOPRIL

REACTIONS (2)
  - Mood altered [None]
  - Abdominal pain [None]

NARRATIVE: CASE EVENT DATE: 2014
